FAERS Safety Report 15188426 (Version 1)
Quarter: 2018Q3

REPORT INFORMATION
  Report Type: Spontaneous
  Country: AF (occurrence: AF)
  Receive Date: 20180625
  Receipt Date: 20180625
  Transmission Date: 20181010
  Serious: Yes (Other)
  Sender: FDA-Public Use
  Company Number: None

PATIENT
  Age: 61 Year
  Sex: Female
  Weight: 72.9 kg

DRUGS (1)
  1. CAPSAICIN CREAM (I DO NOT HAVE THE PACKAGE ANY LONGER) [Suspect]
     Active Substance: CAPSAICIN
     Indication: OSTEOARTHRITIS
     Dosage: ?          QUANTITY:1 TEASPOON(S);OTHER FREQUENCY:ONLY ONCE;?
     Route: 061
     Dates: start: 20170611

REACTIONS (5)
  - Nerve injury [None]
  - Application site warmth [None]
  - Application site hypoaesthesia [None]
  - Application site erythema [None]
  - Application site pain [None]

NARRATIVE: CASE EVENT DATE: 20170611
